FAERS Safety Report 9175716 (Version 1)
Quarter: 2012Q4

REPORT INFORMATION
  Report Type: 
  Country: FR (occurrence: FR)
  Receive Date: 20120911
  Receipt Date: 20120911
  Transmission Date: 20130627
  Serious: Yes (Hospitalization)
  Sender: FDA-Public Use
  Company Number: FR-RB-044182-12

PATIENT
  Age: 42 Year
  Sex: Male

DRUGS (1)
  1. SUBUTEX [Suspect]
     Indication: PRODUCT USED FOR UNKNOWN INDICATION
     Dosage: Dosing details unknown
     Route: 065
     Dates: end: 20091231

REACTIONS (3)
  - Rhabdomyolysis [Recovered/Resolved]
  - Rhabdomyolysis [Unknown]
  - Transaminases increased [Not Recovered/Not Resolved]
